FAERS Safety Report 25976337 (Version 1)
Quarter: 2025Q4

REPORT INFORMATION
  Report Type: Spontaneous
  Country: EU (occurrence: EU)
  Receive Date: 20251029
  Receipt Date: 20251029
  Transmission Date: 20260119
  Serious: Yes (Hospitalization)
  Sender: PFIZER
  Company Number: None

PATIENT
  Age: 29 Year
  Sex: Female

DRUGS (1)
  1. ETHINYL ESTRADIOL\LEVONORGESTREL [Suspect]
     Active Substance: ETHINYL ESTRADIOL\LEVONORGESTREL
     Indication: Contraception
     Dosage: 1 TABLET, DAILY
     Route: 048
     Dates: start: 20180212, end: 20251019

REACTIONS (2)
  - Renal infarct [Recovering/Resolving]
  - Renal artery thrombosis [Recovering/Resolving]

NARRATIVE: CASE EVENT DATE: 20251018
